FAERS Safety Report 10720097 (Version 1)
Quarter: 2015Q1

REPORT INFORMATION
  Report Type: Spontaneous
  Country: US (occurrence: US)
  Receive Date: 20150119
  Receipt Date: 20150119
  Transmission Date: 20150721
  Serious: No
  Sender: FDA-Public Use
  Company Number: US-UNITED THERAPEUTICS-UNT-2014-006715

PATIENT
  Age: 53 Year
  Sex: Female
  Weight: 50.79 kg

DRUGS (2)
  1. REMODULIN [Suspect]
     Active Substance: TREPROSTINIL
     Indication: COR PULMONALE CHRONIC
     Dosage: 0.05 ?G/KG/MIN, CONTINUING
     Route: 058
     Dates: start: 20110921
  2. ADCIRCA [Concomitant]
     Active Substance: TADALAFIL
     Indication: PRODUCT USED FOR UNKNOWN INDICATION

REACTIONS (7)
  - Application site odour [Unknown]
  - Infusion site pain [Not Recovered/Not Resolved]
  - Infusion site infection [Unknown]
  - Infusion site haemorrhage [Unknown]
  - Infusion site erythema [Unknown]
  - Weight increased [Unknown]
  - Infusion site mass [Not Recovered/Not Resolved]

NARRATIVE: CASE EVENT DATE: 20140913
